FAERS Safety Report 20643778 (Version 1)
Quarter: 2022Q1

REPORT INFORMATION
  Report Type: Spontaneous
  Country: US (occurrence: None)
  Receive Date: 20220327
  Receipt Date: 20220327
  Transmission Date: 20220423
  Serious: Yes (unspecified)
  Sender: FDA-Public Use
  Company Number: None

PATIENT
  Age: 52 Year
  Sex: Female
  Weight: 56.25 kg

DRUGS (1)
  1. TEPEZZA [Suspect]
     Active Substance: TEPROTUMUMAB-TRBW
     Indication: Endocrine ophthalmopathy
     Dosage: OTHER FREQUENCY : 10 INFUSION EVERY;?OTHER ROUTE : INFUSIONS;?
     Route: 050
     Dates: start: 20200601

REACTIONS (4)
  - Nail growth abnormal [None]
  - Blood glucose increased [None]
  - Blood growth hormone increased [None]
  - Weight increased [None]

NARRATIVE: CASE EVENT DATE: 20200611
